FAERS Safety Report 6649403-5 (Version None)
Quarter: 2010Q1

REPORT INFORMATION
  Report Type: 
  Country: None (occurrence: None)
  Receive Date: 20100324
  Receipt Date: 20100317
  Transmission Date: 20100710
  Serious: Yes (Death)
  Sender: FDA-Public Use
  Company Number: AT-GENENTECH-268496

PATIENT
  Sex: Female
  Weight: 54.6 kg

DRUGS (11)
  1. RITUXIMAB [Suspect]
     Indication: B-CELL LYMPHOMA
     Dosage: 375 MG/M2, Q8W
     Route: 042
     Dates: start: 20060503
  2. LOVENOX [Concomitant]
     Indication: DRUG USE FOR UNKNOWN INDICATION
     Dosage: UNK
     Dates: start: 20071023
  3. UROSIN [Concomitant]
     Indication: DRUG USE FOR UNKNOWN INDICATION
  4. TEBOFORTAN [Concomitant]
     Indication: DRUG USE FOR UNKNOWN INDICATION
  5. CITALOPRAM HYDROBROMIDE [Concomitant]
     Indication: DRUG USE FOR UNKNOWN INDICATION
  6. ARICEPT [Concomitant]
     Indication: DRUG USE FOR UNKNOWN INDICATION
  7. ACEMIN [Concomitant]
     Indication: DRUG USE FOR UNKNOWN INDICATION
  8. DIGIMERCK [Concomitant]
     Indication: DRUG USE FOR UNKNOWN INDICATION
  9. ZINNAT [Concomitant]
     Indication: DRUG USE FOR UNKNOWN INDICATION
     Dosage: UNK
     Dates: start: 20071023
  10. DIPYRONE TAB [Concomitant]
     Indication: PAIN
     Dosage: 60 UNK, UNK
     Dates: start: 20080130
  11. RINGER ACETATE [Concomitant]
     Indication: DRUG USE FOR UNKNOWN INDICATION
     Dosage: UNK
     Dates: start: 20080531, end: 20080603

REACTIONS (1)
  - CARDIAC FAILURE [None]
